FAERS Safety Report 5284494-8 (Version None)
Quarter: 2007Q1

REPORT INFORMATION
  Report Type: 
  Country: None (occurrence: None)
  Receive Date: 20061228
  Receipt Date: 20060808
  Transmission Date: 20070707
  Serious: Yes (Other)
  Sender: FDA-Public Use
  Company Number: 146492USA

PATIENT
  Age: 13 Year
  Sex: Male
  Weight: 88.905 kg

DRUGS (6)
  1. CLOZAPINE [Suspect]
     Dosage: (100 MG, ONCE), ORAL
     Route: 048
     Dates: start: 20060708
  2. DESMOPRESSIN [Concomitant]
  3. FLUOXETINE HYDROCHLORIDE [Concomitant]
  4. OBETROL [Concomitant]
  5. RISPERDAL [Concomitant]
  6. DOCUSATE SODIUM [Concomitant]

REACTIONS (4)
  - ELECTROCARDIOGRAM ST SEGMENT ABNORMAL [None]
  - FATIGUE [None]
  - MEDICATION ERROR [None]
  - SOMNOLENCE [None]
